FAERS Safety Report 19412051 (Version 1)
Quarter: 2021Q2

REPORT INFORMATION
  Report Type: Spontaneous
  Country: US (occurrence: US)
  Receive Date: 20210614
  Receipt Date: 20210614
  Transmission Date: 20210717
  Serious: No
  Sender: FDA-Public Use
  Company Number: US-COVIS PHARMA GMBH-2021COV00051

PATIENT
  Age: 67 Year
  Sex: Female

DRUGS (22)
  1. CELECOXIB. [Concomitant]
     Active Substance: CELECOXIB
  2. PENICILLIN G [Concomitant]
     Active Substance: PENICILLIN G
  3. OMEPRAZOLE MAGNESIUM. [Suspect]
     Active Substance: OMEPRAZOLE MAGNESIUM
     Route: 048
  4. LISINOPRIL. [Suspect]
     Active Substance: LISINOPRIL
     Route: 048
  5. IBUPROFEN. [Concomitant]
     Active Substance: IBUPROFEN
  6. SACCHARIN [Concomitant]
     Active Substance: SACCHARIN
  7. TRIPTAN [Concomitant]
  8. DOXYCYCLINE. [Concomitant]
     Active Substance: DOXYCYCLINE
  9. DIURETICS [Concomitant]
     Active Substance: UNSPECIFIED INGREDIENT
  10. SULFONYLUREAS [Concomitant]
     Active Substance: UNSPECIFIED INGREDIENT
  11. TRIAMCINOLONE [Concomitant]
     Active Substance: TRIAMCINOLONE
  12. CARBAPEN [Concomitant]
     Active Substance: CARBENICILLIN DISODIUM
  13. SULFA CONTAIN COMPOUNDS [Concomitant]
  14. RED DYE 40 [Concomitant]
  15. DAPSONE. [Concomitant]
     Active Substance: DAPSONE
  16. THIAZIDE DERIVATIVES [Concomitant]
     Active Substance: UNSPECIFIED INGREDIENT
  17. METOPROLOL. [Suspect]
     Active Substance: METOPROLOL
  18. VACCINES [Concomitant]
     Active Substance: UNSPECIFIED INGREDIENT
     Dosage: NON AZ
  19. AZTREONAM. [Concomitant]
     Active Substance: AZTREONAM
  20. DIAZEPAM. [Concomitant]
     Active Substance: DIAZEPAM
  21. LEVOFLOXACIN. [Concomitant]
     Active Substance: LEVOFLOXACIN
  22. CARVEDILOL. [Concomitant]
     Active Substance: CARVEDILOL

REACTIONS (2)
  - Drug hypersensitivity [Unknown]
  - Herpes zoster [Unknown]

NARRATIVE: CASE EVENT DATE: 2007
